FAERS Safety Report 23098623 (Version 1)
Quarter: 2023Q4

REPORT INFORMATION
  Report Type: Spontaneous
  Country: JP (occurrence: JP)
  Receive Date: 20231023
  Receipt Date: 20231023
  Transmission Date: 20240110
  Serious: Yes (Hospitalization)
  Sender: FDA-Public Use
  Company Number: JP-SUNOVION-2023SMP010291

PATIENT

DRUGS (27)
  1. LATUDA [Suspect]
     Active Substance: LURASIDONE HYDROCHLORIDE
     Indication: Persecutory delusion
     Dosage: 20 MG, QD
     Route: 048
     Dates: start: 20221115
  2. LATUDA [Suspect]
     Active Substance: LURASIDONE HYDROCHLORIDE
     Dosage: 40 MG, QD
     Route: 048
     Dates: start: 20221203
  3. LATUDA [Suspect]
     Active Substance: LURASIDONE HYDROCHLORIDE
     Dosage: 20 MG, QD
     Route: 048
     Dates: start: 20221221
  4. LATUDA [Suspect]
     Active Substance: LURASIDONE HYDROCHLORIDE
     Dosage: 40 MG, QD
     Route: 048
     Dates: start: 20221223
  5. LATUDA [Suspect]
     Active Substance: LURASIDONE HYDROCHLORIDE
     Dosage: 60 MG, QD
     Route: 048
     Dates: start: 20230117
  6. LATUDA [Suspect]
     Active Substance: LURASIDONE HYDROCHLORIDE
     Dosage: 40 MG, QD
     Route: 048
     Dates: start: 20230419
  7. LATUDA [Suspect]
     Active Substance: LURASIDONE HYDROCHLORIDE
     Dosage: 20 MG, QD
     Route: 048
     Dates: start: 20230602
  8. AKINETON [Suspect]
     Active Substance: BIPERIDEN HYDROCHLORIDE
     Indication: Parkinsonism
     Dosage: 1 MG, QD
     Route: 048
  9. TANDOSPIRONE [Suspect]
     Active Substance: TANDOSPIRONE
     Indication: Anxiety disorder
     Dosage: UNK
     Route: 048
     Dates: start: 20221221
  10. TANDOSPIRONE [Suspect]
     Active Substance: TANDOSPIRONE
     Dosage: 40 MG, BID
     Route: 048
     Dates: start: 20230106
  11. TANDOSPIRONE [Suspect]
     Active Substance: TANDOSPIRONE
     Dosage: 20 MG, BID
     Route: 048
     Dates: start: 20230315, end: 20230405
  12. BELSOMRA [Suspect]
     Active Substance: SUVOREXANT
     Indication: Insomnia
     Dosage: UNK
     Route: 048
     Dates: start: 202302
  13. DAYVIGO [Suspect]
     Active Substance: LEMBOREXANT
     Indication: Insomnia
     Dosage: SELF-ADJUST WITH 1 TO 4 TABLETS, HS
     Route: 048
     Dates: end: 202302
  14. INTUNIV [Concomitant]
     Active Substance: GUANFACINE HYDROCHLORIDE
     Indication: Attention deficit hyperactivity disorder
     Dosage: 3 MG, QD
     Route: 048
  15. TRAZODONE HYDROCHLORIDE [Concomitant]
     Active Substance: TRAZODONE HYDROCHLORIDE
     Dosage: 12.5 MG, QD
     Route: 048
     Dates: start: 20230630
  16. LITHIUM CARBONATE [Concomitant]
     Active Substance: LITHIUM CARBONATE
     Indication: Bipolar disorder
     Dosage: UNK MG, QD
     Route: 048
  17. LITHIUM CARBONATE [Concomitant]
     Active Substance: LITHIUM CARBONATE
     Dosage: 400 MG, QD
     Route: 048
     Dates: start: 20221015
  18. LITHIUM CARBONATE [Concomitant]
     Active Substance: LITHIUM CARBONATE
     Dosage: 500 MG, QD
     Route: 048
     Dates: start: 20230630
  19. CONCERTA [Concomitant]
     Active Substance: METHYLPHENIDATE HYDROCHLORIDE
     Indication: Attention deficit hyperactivity disorder
     Dosage: UNK
     Route: 048
     Dates: end: 20221115
  20. CONCERTA [Concomitant]
     Active Substance: METHYLPHENIDATE HYDROCHLORIDE
     Dosage: 18 MG, QD
     Route: 048
     Dates: start: 20221118
  21. CONCERTA [Concomitant]
     Active Substance: METHYLPHENIDATE HYDROCHLORIDE
     Dosage: 45 MG, QD
     Route: 048
     Dates: start: 20221203
  22. CONCERTA [Concomitant]
     Active Substance: METHYLPHENIDATE HYDROCHLORIDE
     Dosage: 27 MG, QD
     Route: 048
     Dates: start: 20221223
  23. ALPRAZOLAM [Concomitant]
     Active Substance: ALPRAZOLAM
     Indication: Anxiety disorder
     Dosage: 0.4 MG, AS NECESSARY
     Route: 048
     Dates: start: 20221221
  24. PRAMIPEXOLE [Concomitant]
     Active Substance: PRAMIPEXOLE
     Indication: Restless legs syndrome
     Dosage: 0.25 MG, HS
     Route: 048
  25. FLUVOXAMINE [Concomitant]
     Active Substance: FLUVOXAMINE
     Indication: Depression
     Dosage: 100 MG, QD
     Route: 048
  26. HERBALS [Concomitant]
     Active Substance: HERBALS
     Indication: Malaise
     Dosage: 2.5 G, TID
     Route: 048
  27. TRIAZOLAM [Concomitant]
     Active Substance: TRIAZOLAM
     Indication: Insomnia
     Dosage: 0.25 MG, HS
     Route: 048

REACTIONS (7)
  - Cholelithiasis [Unknown]
  - Dissociation [Recovered/Resolved]
  - Somnolence [Recovering/Resolving]
  - Anxiety [Unknown]
  - Depressive symptom [Unknown]
  - Pollakiuria [Unknown]
  - Product use in unapproved indication [Unknown]

NARRATIVE: CASE EVENT DATE: 20221118
